FAERS Safety Report 12800322 (Version 4)
Quarter: 2016Q4

REPORT INFORMATION
  Report Type: Spontaneous
  Country: BE (occurrence: BE)
  Receive Date: 20160930
  Receipt Date: 20161018
  Transmission Date: 20170207
  Serious: Yes (Death, Life-Threatening, Hospitalization, Other)
  Sender: FDA-Public Use
  Company Number: BE-GILEAD-2016-0235667

PATIENT
  Age: 73 Year
  Sex: Male
  Weight: 50 kg

DRUGS (4)
  1. ZOVIRAX [Concomitant]
     Active Substance: ACYCLOVIR
     Dosage: UNK
     Dates: start: 20160525
  2. CRESTOR [Concomitant]
     Active Substance: ROSUVASTATIN CALCIUM
     Dosage: 20
     Route: 048
     Dates: start: 20140516
  3. ZYDELIG [Suspect]
     Active Substance: IDELALISIB
     Indication: NON-HODGKIN^S LYMPHOMA
     Dosage: 150 MG, BID
     Route: 048
     Dates: start: 20160525, end: 20160826
  4. BACTRIM [Concomitant]
     Active Substance: SULFAMETHOXAZOLE\TRIMETHOPRIM
     Dosage: UNK
     Dates: start: 20160525

REACTIONS (4)
  - Diarrhoea [Not Recovered/Not Resolved]
  - Renal failure [Unknown]
  - Cerebrovascular accident [Fatal]
  - Dehydration [Recovered/Resolved]

NARRATIVE: CASE EVENT DATE: 20160820
